FAERS Safety Report 24848678 (Version 4)
Quarter: 2025Q1

REPORT INFORMATION
  Report Type: Spontaneous
  Country: JP (occurrence: JP)
  Receive Date: 20250116
  Receipt Date: 20250325
  Transmission Date: 20250409
  Serious: Yes (Hospitalization)
  Sender: JOHNSON AND JOHNSON
  Company Number: JP-JNJFOC-20250151669

PATIENT
  Age: 73 Year
  Sex: Male
  Weight: 73.0 kg

DRUGS (1)
  1. ERLEADA [Suspect]
     Active Substance: APALUTAMIDE
     Indication: Product used for unknown indication
     Route: 048
     Dates: start: 20241211, end: 20250108

REACTIONS (5)
  - Renal impairment [Unknown]
  - Toxic epidermal necrolysis [Unknown]
  - Depressed level of consciousness [Unknown]
  - Hepatic function abnormal [Unknown]
  - Diarrhoea [Unknown]

NARRATIVE: CASE EVENT DATE: 20241226
